FAERS Safety Report 19783414 (Version 6)
Quarter: 2022Q1

REPORT INFORMATION
  Report Type: Spontaneous
  Country: AU (occurrence: AU)
  Receive Date: 20210903
  Receipt Date: 20220201
  Transmission Date: 20220424
  Serious: Yes (Hospitalization, Other)
  Sender: FDA-Public Use
  Company Number: AU-BEH-2021135348

PATIENT
  Age: 16 Year
  Sex: Male
  Weight: 81 kg

DRUGS (4)
  1. HIZENTRA [Suspect]
     Active Substance: HUMAN IMMUNOGLOBULIN G
     Indication: Immunodeficiency common variable
     Dosage: 8 GRAM, QW
     Route: 058
     Dates: start: 20210822
  2. HIZENTRA [Suspect]
     Active Substance: HUMAN IMMUNOGLOBULIN G
     Indication: Primary immunodeficiency syndrome
  3. VENTOLIN [Concomitant]
     Active Substance: ALBUTEROL SULFATE
  4. SYMBICORT [Concomitant]
     Active Substance: BUDESONIDE\FORMOTEROL FUMARATE DIHYDRATE

REACTIONS (5)
  - Injection site infection [Recovering/Resolving]
  - Injection site erythema [Recovering/Resolving]
  - Injection site swelling [Recovering/Resolving]
  - Injection site necrosis [Recovering/Resolving]
  - Injection site necrosis [Unknown]

NARRATIVE: CASE EVENT DATE: 20210822
